FAERS Safety Report 7469399-6 (Version None)
Quarter: 2011Q2

REPORT INFORMATION
  Report Type: 
  Country: None (occurrence: None)
  Receive Date: 20110510
  Receipt Date: 20110503
  Transmission Date: 20111010
  Serious: Yes (Hospitalization, Other)
  Sender: FDA-Public Use
  Company Number: GB-PFIZER INC-2011095427

PATIENT
  Age: 29 Year
  Sex: Male

DRUGS (17)
  1. CIPROFLOXACIN [Concomitant]
     Indication: PRODUCT USED FOR UNKNOWN INDICATION
     Dosage: 250 MG, 2X/DAY
  2. FEXOFENADINE [Concomitant]
     Indication: PRODUCT USED FOR UNKNOWN INDICATION
     Dosage: 180 MG, 1X/DAY
  3. PREDNISOLONE [Concomitant]
     Indication: DERMATITIS
     Dosage: 1 MG, 1X/DAY
  4. METHOTREXATE SODIUM [Suspect]
     Dosage: 2.5 MG, UNK
  5. OMEPRAZOLE [Concomitant]
     Indication: PRODUCT USED FOR UNKNOWN INDICATION
     Dosage: 20 MG, 1X/DAY
  6. CROMOGLICIC ACID [Concomitant]
     Dosage: UNK
     Route: 047
  7. ALENDRONIC ACID [Concomitant]
     Indication: PRODUCT USED FOR UNKNOWN INDICATION
     Dosage: 70 MG, WEEKLY
  8. ETORICOXIB [Concomitant]
     Indication: PRODUCT USED FOR UNKNOWN INDICATION
     Dosage: 120 MG, 1X/DAY
  9. FLOXACILLIN SODIUM [Suspect]
     Dosage: 500 MG, UNK
  10. PARACETAMOL [Concomitant]
     Indication: PRODUCT USED FOR UNKNOWN INDICATION
     Dosage: 500 MG, UNK
  11. SULFASALAZINE [Suspect]
     Dosage: 500 MG, UNK
  12. HUMIRA [Suspect]
     Indication: ANKYLOSING SPONDYLITIS
     Dosage: 40 MG/0.8ML PRE FILLED SYRINGE
     Dates: start: 20090101, end: 20100901
  13. HUMIRA [Suspect]
     Dosage: 40 MG/0.8ML PRE FILLED SYRINGE
     Dates: start: 20110201
  14. ARCOXIA [Concomitant]
     Indication: PRODUCT USED FOR UNKNOWN INDICATION
  15. DERMOL SOL [Concomitant]
     Indication: PRODUCT USED FOR UNKNOWN INDICATION
  16. AZATHIOPRINE [Suspect]
     Dosage: 10 MG, UNK
  17. ACETAMINOPHEN AND CODEINE PHOSPHATE [Concomitant]
     Indication: PRODUCT USED FOR UNKNOWN INDICATION

REACTIONS (7)
  - IMPAIRED HEALING [None]
  - DERMATITIS [None]
  - ECZEMA [None]
  - LOCALISED INFECTION [None]
  - PAIN [None]
  - CROHN'S DISEASE [None]
  - DRUG HYPERSENSITIVITY [None]
